FAERS Safety Report 9039417 (Version 1)
Quarter: 2013Q1

REPORT INFORMATION
  Report Type: Spontaneous
  Country: US (occurrence: None)
  Receive Date: 20130123
  Receipt Date: 20130123
  Transmission Date: 20140127
  Serious: Yes (Disabling, Other)
  Sender: FDA-Public Use
  Company Number: None

PATIENT
  Age: 42 Year
  Sex: Male
  Weight: 100.7 kg

DRUGS (1)
  1. CREST PRO-HEALTH [Suspect]
     Route: 048
     Dates: start: 20130118, end: 20130120

REACTIONS (2)
  - Dysgeusia [None]
  - Glossodynia [None]
